FAERS Safety Report 11287543 (Version 1)
Quarter: 2015Q3

REPORT INFORMATION
  Report Type: Spontaneous
  Country: FR (occurrence: FR)
  Receive Date: 20150721
  Receipt Date: 20150721
  Transmission Date: 20151125
  Serious: Yes (Hospitalization)
  Sender: FDA-Public Use
  Company Number: FR-009507513-1507FRA008264

PATIENT
  Age: 37 Year
  Sex: Female

DRUGS (8)
  1. DIAMOX SEQUELS [Concomitant]
     Active Substance: ACETAZOLAMIDE
  2. POTASSIUM (UNSPECIFIED) [Concomitant]
     Active Substance: POTASSIUM
  3. TEMODAL [Suspect]
     Active Substance: TEMOZOLOMIDE
     Dosage: UNK
     Dates: end: 201408
  4. MINIRIN MELT [Concomitant]
     Active Substance: DESMOPRESSIN ACETATE
  5. CORTANCYL [Concomitant]
     Active Substance: PREDNISONE
  6. TEMODAL [Suspect]
     Active Substance: TEMOZOLOMIDE
     Indication: PITUITARY TUMOUR
     Dosage: UNK
     Route: 048
     Dates: start: 201408, end: 201410
  7. LEVOTHYROX [Concomitant]
     Active Substance: LEVOTHYROXINE
  8. PRIMPERAN [Concomitant]
     Active Substance: METOCLOPRAMIDE HYDROCHLORIDE
     Dosage: UNK

REACTIONS (2)
  - General physical health deterioration [Unknown]
  - Vomiting [Unknown]

NARRATIVE: CASE EVENT DATE: 20141002
